FAERS Safety Report 6022488-5 (Version None)
Quarter: 2008Q4

REPORT INFORMATION
  Report Type: 
  Country: None (occurrence: None)
  Receive Date: 20081230
  Receipt Date: 20081218
  Transmission Date: 20090506
  Serious: Yes (Other)
  Sender: FDA-Public Use
  Company Number: PHHY2008BR32622

PATIENT
  Age: 8 Year
  Sex: Male

DRUGS (2)
  1. SANDIMMUNE [Suspect]
     Indication: IMMUNOSUPPRESSION
     Dosage: 3 ML DAILY
     Route: 048
     Dates: start: 20081030, end: 20081030
  2. SANDIMMUNE [Concomitant]
     Dosage: UNK
     Route: 042

REACTIONS (3)
  - FACE OEDEMA [None]
  - LIP OEDEMA [None]
  - VOMITING [None]
